FAERS Safety Report 7095898-5 (Version None)
Quarter: 2010Q4

REPORT INFORMATION
  Report Type: 
  Country: None (occurrence: None)
  Receive Date: 20101111
  Receipt Date: 20101102
  Transmission Date: 20110411
  Serious: Yes (Disabling)
  Sender: FDA-Public Use
  Company Number: US-AMGEN-USASP2010002878

PATIENT

DRUGS (2)
  1. ENBREL [Suspect]
     Indication: RHEUMATOID ARTHRITIS
     Dates: start: 20040101, end: 20100601
  2. GOLIMUMAB [Concomitant]

REACTIONS (4)
  - MALAISE [None]
  - MOBILITY DECREASED [None]
  - RHEUMATOID ARTHRITIS [None]
  - SINUSITIS [None]
